FAERS Safety Report 7323042-5 (Version None)
Quarter: 2011Q1

REPORT INFORMATION
  Report Type: 
  Country: None (occurrence: None)
  Receive Date: 20110301
  Receipt Date: 20110301
  Transmission Date: 20110831
  Serious: Yes (Hospitalization)
  Sender: FDA-Public Use
  Company Number: PHHO2008FR09727

PATIENT
  Sex: Male
  Weight: 63 kg

DRUGS (2)
  1. PLACEBO [Suspect]
     Indication: CARCINOID TUMOUR
     Dosage: PLACEBO
     Route: 048
     Dates: start: 20070613
  2. SANDOSTATIN LAR [Suspect]
     Indication: CARCINOID SYNDROME
     Dosage: UNK
     Route: 048
     Dates: start: 20070613

REACTIONS (2)
  - CYTOLYTIC HEPATITIS [None]
  - TRANSPLANT EVALUATION [None]
